FAERS Safety Report 21067978 (Version 1)
Quarter: 2022Q3

REPORT INFORMATION
  Report Type: Spontaneous
  Country: NZ (occurrence: NZ)
  Receive Date: 20220712
  Receipt Date: 20220712
  Transmission Date: 20221027
  Serious: Yes (Death, Hospitalization)
  Sender: FDA-Public Use
  Company Number: NZ-ROCHE-3133674

PATIENT
  Age: 91 Year
  Sex: Male

DRUGS (1)
  1. CLONAZEPAM [Suspect]
     Active Substance: CLONAZEPAM
     Indication: Product used for unknown indication
     Route: 060

REACTIONS (3)
  - Dysphagia [Fatal]
  - Pneumonia aspiration [Fatal]
  - Product use issue [Unknown]

NARRATIVE: CASE EVENT DATE: 20220124
